FAERS Safety Report 8183920-4 (Version None)
Quarter: 2012Q1

REPORT INFORMATION
  Report Type: 
  Country: None (occurrence: None)
  Receive Date: 20120305
  Receipt Date: 20120228
  Transmission Date: 20120608
  Serious: Yes (Other)
  Sender: FDA-Public Use
  Company Number: FR-ROCHE-1044309

PATIENT
  Age: 69 Year
  Sex: Female

DRUGS (3)
  1. MABTHERA [Suspect]
     Indication: B-CELL LYMPHOMA
     Route: 042
     Dates: start: 20120106, end: 20120131
  2. LEVOTHYROXINE SODIUM [Concomitant]
     Indication: AUTOIMMUNE THYROIDITIS
  3. ZOLPIDEM [Concomitant]

REACTIONS (6)
  - CHEST PAIN [None]
  - ERYTHEMA [None]
  - DYSPNOEA [None]
  - FEELING HOT [None]
  - TACHYCARDIA [None]
  - LARYNGEAL OEDEMA [None]
